FAERS Safety Report 10547187 (Version 1)
Quarter: 2014Q4

REPORT INFORMATION
  Report Type: Spontaneous
  Country: US (occurrence: US)
  Receive Date: 20141027
  Receipt Date: 20141027
  Transmission Date: 20150529
  Serious: No
  Sender: FDA-Public Use
  Company Number: US-009507513-1410USA012539

PATIENT

DRUGS (1)
  1. ASMANEX [Suspect]
     Active Substance: MOMETASONE FUROATE
     Dosage: AEROSOL (EA)220, 2 PUFFS, QD
     Route: 055

REACTIONS (3)
  - Drug dose omission [Unknown]
  - Product quality issue [Unknown]
  - No adverse event [Unknown]
